FAERS Safety Report 4428746-X (Version None)
Quarter: 2004Q3

REPORT INFORMATION
  Report Type: 
  Country: None (occurrence: None)
  Receive Date: 20040818
  Receipt Date: 20040412
  Transmission Date: 20050211
  Serious: Yes (Hospitalization)
  Sender: FDA-Public Use
  Company Number: US-BRISTOL-MYERS SQUIBB COMPANY-12557252

PATIENT
  Age: 71 Year
  Sex: Male

DRUGS (7)
  1. TEQUIN [Suspect]
     Indication: PROPHYLAXIS
     Route: 048
     Dates: start: 20040406, end: 20040406
  2. ACTOS [Concomitant]
  3. VERAPAMIL [Concomitant]
  4. BENACEN [Concomitant]
  5. GLUCOPHAGE [Concomitant]
  6. PLAVIX [Concomitant]
  7. COLACE [Concomitant]

REACTIONS (1)
  - CONVULSION [None]
